FAERS Safety Report 8297729-4 (Version None)
Quarter: 2012Q2

REPORT INFORMATION
  Report Type: 
  Country: None (occurrence: None)
  Receive Date: 20120419
  Receipt Date: 20120417
  Transmission Date: 20120825
  Serious: Yes (Death, Life-Threatening, Hospitalization)
  Sender: FDA-Public Use
  Company Number: US-BAYER-2012-028685

PATIENT
  Age: 71 Year
  Sex: Female
  Weight: 68.571 kg

DRUGS (29)
  1. DEXAMETHASONE [Concomitant]
     Indication: INTERSTITIAL LUNG DISEASE
     Dosage: 40 MG, QD FOR 7 DAYS
     Route: 048
     Dates: start: 20120316
  2. LORATADINE [Concomitant]
     Indication: URTICARIA
     Dosage: 10 MG, QD
     Route: 048
     Dates: start: 19910101
  3. FIBER [Concomitant]
     Indication: SUPPLEMENTATION THERAPY
     Dosage: 5 CAPSULES DAILY
     Route: 048
     Dates: start: 19750101
  4. STOOL SOFTENER [Concomitant]
     Indication: CONSTIPATION
     Dosage: 1 TABLET, PRN
     Route: 048
     Dates: start: 20080101
  5. PREDNISONE TAB [Concomitant]
     Indication: ECZEMA
     Dosage: 10 MG, QD
     Route: 048
     Dates: start: 20120305, end: 20120316
  6. SODIUM CHLORIDE [Concomitant]
     Indication: FLUID REPLACEMENT
     Dosage: 1000 ML, ONCE
     Route: 042
     Dates: start: 20120305, end: 20120305
  7. KYTRIL [Concomitant]
     Indication: VOMITING
  8. CRESTOR [Concomitant]
     Indication: BLOOD CHOLESTEROL INCREASED
     Dosage: 40 MG, QD
     Route: 048
     Dates: start: 20090101
  9. NAPROXEN [Concomitant]
     Indication: ARTHRITIS
     Dosage: 500 MG, BID
     Route: 048
     Dates: start: 20010101
  10. MULTI-VITAMINS [Concomitant]
     Indication: VITAMIN SUPPLEMENTATION
     Dosage: 1 TABLET, QD
     Route: 048
     Dates: start: 19750101
  11. COMPAZINE [Concomitant]
     Indication: VOMITING
  12. ASPIRIN [Concomitant]
     Indication: CARDIOVASCULAR EVENT PROPHYLAXIS
     Dosage: 81 MG, QD
     Route: 048
     Dates: start: 20030101
  13. OMEPRAZOLE [Concomitant]
     Indication: GASTROOESOPHAGEAL REFLUX DISEASE
     Dosage: 20 MG, QD
     Route: 048
     Dates: start: 20110912
  14. EXFORGE [Concomitant]
     Indication: HYPERTENSION
     Dosage: 5-160 MG, QD
     Route: 048
     Dates: start: 20090101
  15. FIORICET [Concomitant]
     Indication: MIGRAINE
     Dosage: 500 MG, EVERY 4-6 HOURS PRN
     Route: 048
     Dates: start: 19860101
  16. MELATONIN [Concomitant]
     Indication: SLEEP DISORDER
     Dosage: 3 MG, QD
     Route: 048
     Dates: start: 20040101
  17. ALBUTEROL [Concomitant]
     Indication: ASTHMA
     Dosage: AS DIRECTED, PRN
     Route: 048
     Dates: start: 19910101
  18. HYDROCORTISONE [Concomitant]
     Indication: ECZEMA
     Dosage: AS DIRECTED, BID
     Route: 061
     Dates: start: 20120305
  19. KYTRIL [Concomitant]
     Indication: NAUSEA
     Dosage: 1 MG, DAY 1 OF CYCLE PRN
     Route: 048
     Dates: start: 20120227
  20. IXABEPILONE [Suspect]
     Indication: BREAST CANCER METASTATIC
     Dosage: 56 MG, UNK
     Route: 042
     Dates: start: 20120227, end: 20120227
  21. VICODIN [Concomitant]
     Indication: PAIN
     Dosage: 5-500 MG, QD
     Route: 048
     Dates: start: 20110629
  22. CALCIUM CARBONATE [Concomitant]
     Indication: MINERAL SUPPLEMENTATION
     Dosage: 600 MG, BID
     Route: 048
     Dates: start: 19750101
  23. CELEXA [Concomitant]
     Indication: ANTIDEPRESSANT THERAPY
     Dosage: 10 MG, QD
     Route: 048
     Dates: start: 20120215
  24. PROTONIX [Concomitant]
     Indication: PROPHYLAXIS
     Dosage: 40 MG, QD
     Route: 048
     Dates: start: 20120316
  25. SORAFENIB (RAF KINASE INHIBITOR) [Suspect]
     Indication: BREAST CANCER METASTATIC
     Dosage: 400 MG, BID
     Route: 048
     Dates: start: 20120227, end: 20120316
  26. MAXZIDE [Concomitant]
     Indication: HYPERTENSION
     Dosage: 25 MG, QD
     Route: 048
     Dates: start: 20090101, end: 20120305
  27. AMBIEN [Concomitant]
     Indication: SLEEP DISORDER
     Dosage: 5 MG, QD
     Route: 048
     Dates: start: 20110707
  28. SENNA PLUS [Concomitant]
     Indication: CONSTIPATION PROPHYLAXIS
     Dosage: 8.6 MG, QD
     Route: 048
     Dates: start: 20090101
  29. COMPAZINE [Concomitant]
     Indication: NAUSEA
     Dosage: 10 MG, EVERY 4 HOURS PRN
     Route: 048

REACTIONS (3)
  - BREAST CANCER METASTATIC [None]
  - METABOLIC ACIDOSIS [None]
  - HEPATIC FAILURE [None]
